FAERS Safety Report 6946188-X (Version None)
Quarter: 2010Q3

REPORT INFORMATION
  Report Type: 
  Country: None (occurrence: None)
  Receive Date: 20100819
  Receipt Date: 20100810
  Transmission Date: 20110219
  Serious: Yes (Hospitalization, Other)
  Sender: FDA-Public Use
  Company Number: 2010EN000172

PATIENT
  Age: 16 Year
  Sex: Male
  Weight: 103 kg

DRUGS (14)
  1. ONCASPAR [Suspect]
     Indication: ACUTE LYMPHOCYTIC LEUKAEMIA
     Dosage: 6050 IU; X1; IV, 5637.5 IU; X1; IV
     Route: 042
     Dates: start: 20100510, end: 20100510
  2. ONCASPAR [Suspect]
     Indication: ACUTE LYMPHOCYTIC LEUKAEMIA
     Dosage: 6050 IU; X1; IV, 5637.5 IU; X1; IV
     Route: 042
     Dates: start: 20100625, end: 20100625
  3. ONCASPAR [Suspect]
     Indication: ACUTE LYMPHOCYTIC LEUKAEMIA
     Dosage: 6050 IU; X1; IV, 5637.5 IU; X1; IV
     Route: 042
     Dates: start: 20100726, end: 20100726
  4. DAUNORUBICIN HCL [Suspect]
     Indication: ACUTE LYMPHOCYTIC LEUKAEMIA
     Dosage: 240 MG; ; IV
     Route: 042
     Dates: start: 20100507, end: 20100528
  5. VINCRISTINE [Suspect]
     Indication: ACUTE LYMPHOCYTIC LEUKAEMIA
     Dosage: 8 MG; ; IV
     Route: 042
     Dates: start: 20100507, end: 20100528
  6. VINCRISTINE [Suspect]
     Indication: ACUTE LYMPHOCYTIC LEUKAEMIA
     Dosage: 8 MG; ; IV
     Route: 042
     Dates: end: 20100802
  7. BACTRIM [Suspect]
     Indication: PRODUCT USED FOR UNKNOWN INDICATION
  8. PREVACID [Suspect]
     Indication: PRODUCT USED FOR UNKNOWN INDICATION
  9. MERCAPTOPURINE [Suspect]
     Indication: ACUTE LYMPHOCYTIC LEUKAEMIA
     Dosage: 3800 MG; ; PO
     Route: 048
     Dates: end: 20100725
  10. ACTIGALL [Suspect]
     Indication: PRODUCT USED FOR UNKNOWN INDICATION
  11. CYTARABINE [Concomitant]
  12. METHOTREXATE [Concomitant]
  13. PREDNISONE [Concomitant]
  14. CYCLOPHOSPHAMIDE [Concomitant]

REACTIONS (7)
  - BLOOD FIBRINOGEN DECREASED [None]
  - GALLBLADDER DISORDER [None]
  - HEPATIC STEATOSIS [None]
  - HYPERCHOLESTEROLAEMIA [None]
  - HYPERGLYCAEMIA [None]
  - HYPERTRIGLYCERIDAEMIA [None]
  - INTERNATIONAL NORMALISED RATIO INCREASED [None]
